FAERS Safety Report 6865407-1 (Version None)
Quarter: 2010Q3

REPORT INFORMATION
  Report Type: 
  Country: None (occurrence: None)
  Receive Date: 20100721
  Receipt Date: 20100715
  Transmission Date: 20110219
  Serious: Yes (Life-Threatening, Hospitalization, Other)
  Sender: FDA-Public Use
  Company Number: DE-ELI_LILLY_AND_COMPANY-DE201007003853

PATIENT
  Sex: Male

DRUGS (5)
  1. ALIMTA [Suspect]
     Indication: PLEURAL MESOTHELIOMA
     Dosage: 500 MG/M2, UNK
     Route: 042
     Dates: start: 20100318
  2. ALIMTA [Suspect]
     Dosage: 250 MG/M2, UNKNOWN
     Route: 042
  3. FOLIC ACID [Concomitant]
  4. DEXAMETHASONE TAB [Concomitant]
  5. VITAMIN B-12 [Concomitant]

REACTIONS (3)
  - NEUTROPENIA [None]
  - PNEUMOTHORAX [None]
  - THROMBOCYTOPENIA [None]
